FAERS Safety Report 4912864-3 (Version None)
Quarter: 2006Q1

REPORT INFORMATION
  Report Type: 
  Country: None (occurrence: None)
  Receive Date: 20060215
  Receipt Date: 20060203
  Transmission Date: 20060701
  Serious: Yes (Hospitalization)
  Sender: FDA-Public Use
  Company Number: 2006GB00208

PATIENT
  Age: 78 Year
  Sex: Male

DRUGS (2)
  1. ROSUVASTATIN [Suspect]
     Indication: HYPERCHOLESTEROLAEMIA
     Route: 048
  2. METFORMIN [Suspect]

REACTIONS (3)
  - CLOSTRIDIUM COLITIS [None]
  - DYSPNOEA [None]
  - LIVER FUNCTION TEST ABNORMAL [None]
